FAERS Safety Report 6885638-4 (Version None)
Quarter: 2010Q3

REPORT INFORMATION
  Report Type: 
  Country: None (occurrence: None)
  Receive Date: 20100729
  Receipt Date: 20080525
  Transmission Date: 20110219
  Serious: No
  Sender: FDA-Public Use
  Company Number: US-PFIZER INC-2008045861

PATIENT
  Sex: Female
  Weight: 62.7 kg

DRUGS (4)
  1. CELEBREX [Suspect]
     Indication: PAIN
     Dates: start: 20080101
  2. SYNVISC [Suspect]
     Indication: ARTHROPATHY
     Dates: start: 20080101
  3. EVISTA [Concomitant]
  4. BENICAR [Concomitant]

REACTIONS (4)
  - NASAL CONGESTION [None]
  - NASOPHARYNGITIS [None]
  - OEDEMA PERIPHERAL [None]
  - RHINORRHOEA [None]
